FAERS Safety Report 8026037-1 (Version None)
Quarter: 2012Q1

REPORT INFORMATION
  Report Type: 
  Country: None (occurrence: None)
  Receive Date: 20120105
  Receipt Date: 20110715
  Transmission Date: 20120608
  Serious: No
  Sender: FDA-Public Use
  Company Number: US-ABBOTT-11P-163-0840669-00

PATIENT
  Sex: Female
  Weight: 56 kg

DRUGS (2)
  1. SYNTHROID [Suspect]
     Indication: HYPOTHYROIDISM
     Dosage: IN AM
     Route: 048
     Dates: start: 20110701
  2. JANUVIA [Concomitant]
     Indication: TYPE 2 DIABETES MELLITUS

REACTIONS (3)
  - NAUSEA [None]
  - DIZZINESS [None]
  - HUNGER [None]
